FAERS Safety Report 21222690 (Version 4)
Quarter: 2022Q4

REPORT INFORMATION
  Report Type: Spontaneous
  Country: TR (occurrence: TR)
  Receive Date: 20220817
  Receipt Date: 20221028
  Transmission Date: 20230112
  Serious: Yes (Disabling)
  Sender: FDA-Public Use
  Company Number: TR-002147023-NVSC2022TR183211

PATIENT
  Sex: Female
  Weight: 86 kg

DRUGS (5)
  1. XOLAIR [Suspect]
     Active Substance: OMALIZUMAB
     Indication: Asthma
     Dosage: MOST RECENT DOSE ON 31/AUG/2022
     Route: 058
     Dates: start: 20170221
  2. XOLAIR [Suspect]
     Active Substance: OMALIZUMAB
     Indication: Urticaria
  3. DESLORATADINE\MONTELUKAST SODIUM [Concomitant]
     Active Substance: DESLORATADINE\MONTELUKAST SODIUM
     Indication: Asthma
     Dosage: 10 MG, QD
     Dates: start: 2011
  4. SYMBICORT [Concomitant]
     Active Substance: BUDESONIDE\FORMOTEROL FUMARATE DIHYDRATE
     Indication: Asthma
     Dosage: UNK (2X2)
     Dates: start: 2011
  5. VENTOLIN [Concomitant]
     Active Substance: ALBUTEROL SULFATE
     Indication: Asthma
     Dosage: UNK
     Dates: start: 2011

REACTIONS (2)
  - Marginal zone lymphoma [Not Recovered/Not Resolved]
  - Gastrointestinal lymphoma [Not Recovered/Not Resolved]

NARRATIVE: CASE EVENT DATE: 20220916
